FAERS Safety Report 6274402-5 (Version None)
Quarter: 2009Q3

REPORT INFORMATION
  Report Type: 
  Country: None (occurrence: None)
  Receive Date: 20090720
  Receipt Date: 20090707
  Transmission Date: 20100115
  Serious: Yes (Hospitalization)
  Sender: FDA-Public Use
  Company Number: CA-SANOFI-SYNTHELABO-A01200902761

PATIENT
  Age: 44 Year
  Sex: Female

DRUGS (2)
  1. CYCLOMEN [Suspect]
     Indication: ENDOMETRIOSIS
     Route: 048
     Dates: start: 20090206, end: 20090302
  2. WARFARIN SODIUM [Concomitant]
     Indication: DEEP VEIN THROMBOSIS
     Dosage: 2-3 MG ONCE DAILY
     Route: 048
     Dates: start: 20081101

REACTIONS (6)
  - ARTHRALGIA [None]
  - ASTHENIA [None]
  - BURSITIS [None]
  - INTERNATIONAL NORMALISED RATIO INCREASED [None]
  - MYALGIA [None]
  - TENDONITIS [None]
